FAERS Safety Report 8247806-9 (Version None)
Quarter: 2012Q1

REPORT INFORMATION
  Report Type: 
  Country: None (occurrence: None)
  Receive Date: 20120330
  Receipt Date: 20120326
  Transmission Date: 20120608
  Serious: Yes (Other)
  Sender: FDA-Public Use
  Company Number: US-BAYER-2010-002790

PATIENT
  Age: 38 Year
  Sex: Female

DRUGS (1)
  1. YASMIN [Suspect]
     Indication: ACNE
     Dosage: UNK
     Route: 048
     Dates: start: 20010101, end: 20020101

REACTIONS (6)
  - CEREBROVASCULAR ACCIDENT [None]
  - TRANSIENT ISCHAEMIC ATTACK [None]
  - VIITH NERVE PARALYSIS [None]
  - HYPOAESTHESIA [None]
  - AMNESIA [None]
  - FEELING ABNORMAL [None]
